FAERS Safety Report 21097217 (Version 1)
Quarter: 2022Q3

REPORT INFORMATION
  Report Type: Spontaneous
  Country: RO (occurrence: RO)
  Receive Date: 20220719
  Receipt Date: 20220719
  Transmission Date: 20221027
  Serious: Yes (Hospitalization, Other)
  Sender: FDA-Public Use
  Company Number: RO-PFIZER INC-PV202200019750

PATIENT
  Sex: Female

DRUGS (2)
  1. ENBREL [Suspect]
     Active Substance: ETANERCEPT
     Indication: Product used for unknown indication
     Dosage: 50 MG, WEEKLY
     Route: 065
     Dates: start: 201902, end: 202003
  2. ENBREL [Suspect]
     Active Substance: ETANERCEPT
     Dosage: 50 MG WEEKLY
     Route: 065
     Dates: start: 202006

REACTIONS (7)
  - Myocardial infarction [Unknown]
  - Arthralgia [Unknown]
  - Red blood cell sedimentation rate increased [Unknown]
  - C-reactive protein increased [Unknown]
  - Blood glucose increased [Unknown]
  - Blood cholesterol abnormal [Unknown]
  - Blood triglycerides abnormal [Unknown]
